FAERS Safety Report 9725165 (Version 3)
Quarter: 2013Q4

REPORT INFORMATION
  Report Type: Spontaneous
  Country: IT (occurrence: IT)
  Receive Date: 20131203
  Receipt Date: 20131217
  Transmission Date: 20140711
  Serious: Yes (Hospitalization)
  Sender: FDA-Public Use
  Company Number: IT-ROCHE-1307961

PATIENT
  Age: 23 Year
  Sex: Female

DRUGS (6)
  1. DIAZEPAM [Suspect]
     Indication: PRODUCT USED FOR UNKNOWN INDICATION
     Route: 065
     Dates: start: 20130724
  2. DIAZEPAM [Suspect]
     Route: 048
     Dates: start: 20131021, end: 20131021
  3. TOLEP [Suspect]
     Indication: PRODUCT USED FOR UNKNOWN INDICATION
     Route: 065
     Dates: start: 20130727
  4. TOLEP [Suspect]
     Route: 048
     Dates: start: 20131021, end: 20131021
  5. PAROXETINE HCL [Suspect]
     Indication: PRODUCT USED FOR UNKNOWN INDICATION
     Route: 065
     Dates: start: 20130724
  6. PAROXETINE HCL [Suspect]
     Dosage: PAROXETINA CLORIDRATO
     Route: 048
     Dates: start: 20131021, end: 20131021

REACTIONS (3)
  - Sopor [Recovered/Resolved]
  - Suicide attempt [Recovered/Resolved]
  - Drug abuse [Unknown]
